FAERS Safety Report 25814271 (Version 1)
Quarter: 2025Q3

REPORT INFORMATION
  Report Type: Spontaneous
  Country: US (occurrence: None)
  Receive Date: 20250917
  Receipt Date: 20250917
  Transmission Date: 20251020
  Serious: Yes (Other)
  Sender: Harrow Health
  Company Number: US-HARROW-HAR-2025-US-00883

PATIENT
  Age: 82 Year
  Sex: Female

DRUGS (6)
  1. VEVYE [Suspect]
     Active Substance: CYCLOSPORINE
     Route: 047
     Dates: start: 20250820, end: 20250822
  2. Diliazem [Concomitant]
  3. LATANOPROST [Concomitant]
     Active Substance: LATANOPROST
  4. TIMOLOL [Concomitant]
     Active Substance: TIMOLOL
  5. THERATEARS [Concomitant]
     Active Substance: CARBOXYMETHYLCELLULOSE SODIUM
  6. GENTEAL TEARS (MILD) [Concomitant]
     Active Substance: DEXTRAN 70\HYPROMELLOSE 2910 (4000 MPA.S)

REACTIONS (4)
  - Palpitations [Unknown]
  - Arrhythmia [Unknown]
  - Flushing [Unknown]
  - Vision blurred [Recovered/Resolved]

NARRATIVE: CASE EVENT DATE: 20250820
